FAERS Safety Report 6978484-4 (Version None)
Quarter: 2010Q3

REPORT INFORMATION
  Report Type: 
  Country: None (occurrence: None)
  Receive Date: 20100913
  Receipt Date: 20100831
  Transmission Date: 20110219
  Serious: Yes (Life-Threatening, Hospitalization, Disabling, Other)
  Sender: FDA-Public Use
  Company Number: BR-BAYER-200924647LA

PATIENT
  Age: 42 Year
  Sex: Male

DRUGS (3)
  1. BETAFERON [Suspect]
     Indication: MULTIPLE SCLEROSIS
     Dosage: BETAJECT
     Route: 058
     Dates: start: 20091001, end: 20100101
  2. BETAFERON [Suspect]
     Dosage: TOTAL DAILY DOSE: 9.6 MIU
     Route: 058
     Dates: start: 20050101, end: 20090301
  3. SOLU-MEDROL [Suspect]
     Indication: MASS
     Dosage: PULSE THERAPY
     Route: 042
     Dates: start: 20090201, end: 20100401

REACTIONS (35)
  - AMNESIA [None]
  - APHASIA [None]
  - ASTHENIA [None]
  - BLINDNESS [None]
  - BLOOD CALCIUM DECREASED [None]
  - BLOOD MAGNESIUM DECREASED [None]
  - BLOOD POTASSIUM DECREASED [None]
  - BLOOD SODIUM DECREASED [None]
  - BRAIN INJURY [None]
  - BRAIN OEDEMA [None]
  - COMA [None]
  - DECREASED APPETITE [None]
  - DISORIENTATION [None]
  - EXTREMITY NECROSIS [None]
  - HYPOAESTHESIA [None]
  - INJECTION SITE ABSCESS [None]
  - INJECTION SITE FIBROSIS [None]
  - INJECTION SITE HAEMORRHAGE [None]
  - INJECTION SITE NECROSIS [None]
  - INJECTION SITE PAIN [None]
  - INJECTION SITE SCAR [None]
  - INJECTION SITE SWELLING [None]
  - MASS [None]
  - MEMORY IMPAIRMENT [None]
  - MOBILITY DECREASED [None]
  - MULTIPLE SCLEROSIS [None]
  - MULTIPLE SCLEROSIS RELAPSE [None]
  - MUSCLE RIGIDITY [None]
  - MUSCLE SPASMS [None]
  - MUSCULAR WEAKNESS [None]
  - PAIN IN EXTREMITY [None]
  - PARKINSONISM [None]
  - QUADRIPLEGIA [None]
  - SPEECH DISORDER [None]
  - WEIGHT DECREASED [None]
